FAERS Safety Report 8000845-5 (Version None)
Quarter: 2011Q4

REPORT INFORMATION
  Report Type: 
  Country: None (occurrence: None)
  Receive Date: 20111222
  Receipt Date: 20110128
  Transmission Date: 20120403
  Serious: No
  Sender: FDA-Public Use
  Company Number: US-VIIV HEALTHCARE LIMITED-A0910203A

PATIENT
  Age: 33 Year
  Sex: Female

DRUGS (3)
  1. MULTI-VITAMIN [Concomitant]
  2. TRIZIVIR [Suspect]
     Indication: HIV INFECTION
     Dosage: 1CAP TWICE PER DAY
     Route: 048
     Dates: start: 20061001
  3. VIREAD [Suspect]
     Dosage: 300MG PER DAY
     Route: 048
     Dates: start: 20061001

REACTIONS (1)
  - WEIGHT DECREASED [None]
